FAERS Safety Report 14791668 (Version 1)
Quarter: 2018Q2

REPORT INFORMATION
  Report Type: Spontaneous
  Country: US (occurrence: US)
  Receive Date: 20180413
  Receipt Date: 20180413
  Transmission Date: 20180711
  Serious: Yes (Hospitalization)
  Sender: FDA-Public Use
  Company Number: None

PATIENT
  Age: 68 Year
  Sex: Female

DRUGS (11)
  1. MULIT VITAMIN [Concomitant]
  2. VITAMIN E [Concomitant]
     Active Substance: .ALPHA.-TOCOPHEROL
  3. VITAMIN C [Concomitant]
     Active Substance: ASCORBIC ACID
  4. CALCIUM/MAGN [Concomitant]
  5. FISH OIL [Concomitant]
     Active Substance: FISH OIL
  6. COQ10 [Concomitant]
     Active Substance: UBIDECARENONE
  7. ANASTROZOLE. [Concomitant]
     Active Substance: ANASTROZOLE
  8. CHONDROITIN [Concomitant]
     Active Substance: CHONDROITIN
  9. IBRANCE [Suspect]
     Active Substance: PALBOCICLIB
     Indication: NEOPLASM MALIGNANT
     Dosage: ?          OTHER FREQUENCY:21 DAYS ON 7 OFF;?
     Route: 048
     Dates: start: 20180105
  10. LISINOPRIL. [Concomitant]
     Active Substance: LISINOPRIL
  11. VITAMIN D3 [Concomitant]
     Active Substance: CHOLECALCIFEROL

REACTIONS (1)
  - Bronchitis [None]
